FAERS Safety Report 9875171 (Version 1)
Quarter: 2014Q1

REPORT INFORMATION
  Report Type: Spontaneous
  Country: US (occurrence: None)
  Receive Date: 20140205
  Receipt Date: 20140205
  Transmission Date: 20141002
  Serious: Yes (Hospitalization, Other)
  Sender: FDA-Public Use
  Company Number: None

PATIENT
  Age: 65 Year
  Sex: Male
  Weight: 95.26 kg

DRUGS (2)
  1. CIPROFLOXACIN [Suspect]
     Indication: PROPHYLAXIS
     Dosage: 2 PILLS?PRE+POST BIOPSY?TAKEN BY MOUTH
     Route: 048
     Dates: start: 20120328, end: 20120329
  2. CIPROFLOXACIN [Suspect]
     Indication: BIOPSY PROSTATE
     Dosage: 2 PILLS?PRE+POST BIOPSY?TAKEN BY MOUTH
     Route: 048
     Dates: start: 20120328, end: 20120329

REACTIONS (4)
  - Arthropathy [None]
  - Arthralgia [None]
  - Knee deformity [None]
  - Cartilage atrophy [None]
